FAERS Safety Report 19122781 (Version 2)
Quarter: 2021Q2

REPORT INFORMATION
  Report Type: Spontaneous
  Country: US (occurrence: US)
  Receive Date: 20210412
  Receipt Date: 20210420
  Transmission Date: 20210717
  Serious: No
  Sender: FDA-Public Use
  Company Number: US-BIOGEN-2021BI00999848

PATIENT
  Age: 29 Year
  Sex: Female

DRUGS (1)
  1. VUMERITY [Suspect]
     Active Substance: DIROXIMEL FUMARATE
     Indication: MULTIPLE SCLEROSIS
     Route: 065
     Dates: start: 20210105

REACTIONS (2)
  - Hemiparesis [Recovered/Resolved]
  - Hemiparaesthesia [Unknown]

NARRATIVE: CASE EVENT DATE: 2021
